FAERS Safety Report 6261243-8 (Version None)
Quarter: 2009Q3

REPORT INFORMATION
  Report Type: 
  Country: None (occurrence: None)
  Receive Date: 20090709
  Receipt Date: 20090626
  Transmission Date: 20100115
  Serious: Yes (Hospitalization, Other)
  Sender: FDA-Public Use
  Company Number: US-ROCHE-631244

PATIENT
  Sex: Female
  Weight: 92.1 kg

DRUGS (8)
  1. CAPECITABINE [Suspect]
     Dosage: DOSE: 1500 MG AM, 1000 MG PM
     Route: 048
     Dates: start: 20081126
  2. CAPECITABINE [Suspect]
     Route: 048
     Dates: start: 20090122
  3. CAPECITABINE [Suspect]
     Dosage: 1000 MG QAM AND 1500 MG QPM
     Route: 048
     Dates: start: 20090213, end: 20090227
  4. CAPECITABINE [Suspect]
     Route: 048
     Dates: end: 20090421
  5. OXYCONTIN [Concomitant]
     Indication: PAIN
     Dosage: ROUTE: Q12
  6. DIOVAN [Concomitant]
  7. PREVACID [Concomitant]
     Dosage: FREQUENCY: D
     Route: 048
  8. FENTANYL-100 [Concomitant]
     Indication: PAIN
     Dosage: FREQUENCY: Q3
     Route: 061

REACTIONS (12)
  - ABASIA [None]
  - ABDOMINAL DISTENSION [None]
  - ABDOMINAL PAIN [None]
  - ASCITES [None]
  - DYSPNOEA [None]
  - FATIGUE [None]
  - JOINT SWELLING [None]
  - MALIGNANT NEOPLASM PROGRESSION [None]
  - MUSCULOSKELETAL CHEST PAIN [None]
  - OEDEMA PERIPHERAL [None]
  - STRESS [None]
  - VERTIGO [None]
